FAERS Safety Report 22712190 (Version 2)
Quarter: 2025Q3

REPORT INFORMATION
  Report Type: Report from Study
  Country: US (occurrence: US)
  Receive Date: 20230717
  Receipt Date: 20250913
  Transmission Date: 20251020
  Serious: Yes (Other)
  Sender: ABBVIE
  Company Number: US-ABBVIE-5327074

PATIENT
  Age: 79 Year
  Sex: Male

DRUGS (1)
  1. HUMIRA [Suspect]
     Active Substance: ADALIMUMAB
     Indication: Crohn^s disease
     Route: 058

REACTIONS (4)
  - Blindness unilateral [Unknown]
  - Eye operation [Recovering/Resolving]
  - Visual impairment [Unknown]
  - Eye operation [Unknown]

NARRATIVE: CASE EVENT DATE: 20221101
